FAERS Safety Report 4863887-4 (Version None)
Quarter: 2005Q4

REPORT INFORMATION
  Report Type: 
  Country: None (occurrence: None)
  Receive Date: 20051222
  Receipt Date: 20050504
  Transmission Date: 20060501
  Serious: Yes (Life-Threatening, Hospitalization, Other)
  Sender: FDA-Public Use
  Company Number: GBWYE644605MAY05

PATIENT
  Sex: Male

DRUGS (6)
  1. ENBREL [Suspect]
     Indication: RHEUMATOID ARTHRITIS
     Dosage: UNKNOWN
     Route: 058
     Dates: start: 20040708, end: 20050503
  2. METHOTREXATE [Concomitant]
  3. FOLIC ACID [Concomitant]
  4. TRAMADOL HCL [Concomitant]
  5. AMITRIPTYLINE [Concomitant]
  6. NEXIUM [Concomitant]
     Dates: start: 20041101

REACTIONS (2)
  - PERICARDITIS CONSTRICTIVE [None]
  - PLEURAL EFFUSION [None]
